FAERS Safety Report 4289244-X (Version None)
Quarter: 2004Q1

REPORT INFORMATION
  Report Type: 
  Country: None (occurrence: None)
  Receive Date: 20040206
  Receipt Date: 20040126
  Transmission Date: 20041129
  Serious: Yes (Other)
  Sender: FDA-Public Use
  Company Number: 2004005672

PATIENT
  Age: 43 Year
  Sex: Female
  Weight: 181.4388 kg

DRUGS (1)
  1. NEURONTIN [Suspect]
     Indication: PAIN

REACTIONS (1)
  - DYSPNOEA [None]
